FAERS Safety Report 9308400 (Version 1)
Quarter: 2013Q2

REPORT INFORMATION
  Report Type: Spontaneous
  Country: US (occurrence: US)
  Receive Date: 20130524
  Receipt Date: 20130524
  Transmission Date: 20140414
  Serious: No
  Sender: FDA-Public Use
  Company Number: US-PFIZER INC-2013157380

PATIENT
  Age: 26 Year
  Sex: Female
  Weight: 63 kg

DRUGS (1)
  1. DEPO-PROVERA [Suspect]
     Dosage: UNK
     Route: 042
     Dates: start: 20130508

REACTIONS (3)
  - Hepatic enzyme increased [Unknown]
  - Incorrect route of drug administration [Unknown]
  - Injection site haemorrhage [Unknown]
